FAERS Safety Report 24623713 (Version 1)
Quarter: 2024Q4

REPORT INFORMATION
  Report Type: Spontaneous
  Country: US (occurrence: US)
  Receive Date: 20241115
  Receipt Date: 20241115
  Transmission Date: 20250114
  Serious: Yes (Hospitalization, Other)
  Sender: ABBVIE
  Company Number: US-ABBVIE-5994963

PATIENT
  Age: 41 Year
  Sex: Female
  Weight: 69 kg

DRUGS (25)
  1. SKYRIZI [Suspect]
     Active Substance: RISANKIZUMAB-RZAA
     Indication: Crohn^s disease
     Dosage: FOR 56 DAYS
     Route: 058
     Dates: start: 20230613
  2. ALBUTEROL SULFATE [Concomitant]
     Active Substance: ALBUTEROL SULFATE
     Indication: Product used for unknown indication
     Dosage: 1 PUFF USING INHALER AS DIRECTED AND AS NEEDED
  3. DICYCLOMINE [Concomitant]
     Active Substance: DICYCLOMINE HYDROCHLORIDE
     Indication: Product used for unknown indication
     Dosage: 30 MINUTES BEFORE MEALS AND AT BEDTIME
     Route: 048
  4. POTASSIUM CHLORIDE [Concomitant]
     Active Substance: POTASSIUM CHLORIDE
     Indication: Product used for unknown indication
     Dosage: TAKE 2 TABLET BY MOUTH TWICE A DAY
     Route: 048
  5. MORPHINE [Concomitant]
     Active Substance: MORPHINE
     Indication: Product used for unknown indication
     Route: 058
     Dates: start: 20240313, end: 20240313
  6. MAGNESIUM OXIDE [Concomitant]
     Active Substance: MAGNESIUM OXIDE
     Indication: Product used for unknown indication
     Route: 048
     Dates: end: 20230719
  7. ONDANSETRON [Concomitant]
     Active Substance: ONDANSETRON
     Indication: Nausea
     Dosage: PRN AS NEEDED FOR NAUSEA/VORITING
     Route: 048
  8. PROMETHAZINE HYDROCHLORIDE [Concomitant]
     Active Substance: PROMETHAZINE HYDROCHLORIDE
     Indication: Nausea
     Dosage: PRN FOR NAUSEA VOMITING
     Route: 048
  9. ZOLPIDEM [Concomitant]
     Active Substance: ZOLPIDEM TARTRATE
     Indication: Sleep disorder
     Route: 048
  10. ACETAMINOPHEN\HYDROCODONE [Concomitant]
     Active Substance: ACETAMINOPHEN\HYDROCODONE
     Indication: Pain
     Dosage: 5-325 MG TAKE 1 TABLET BY MOUTH EVERY EIGHT HOURS AS NEEDED
  11. Ferus sulfate [Concomitant]
     Indication: Product used for unknown indication
     Route: 048
  12. LEVOFLOXACIN [Concomitant]
     Active Substance: LEVOFLOXACIN
     Indication: Product used for unknown indication
     Route: 048
  13. METRONIDAZOLE [Concomitant]
     Active Substance: METRONIDAZOLE
     Indication: Product used for unknown indication
     Route: 048
  14. AMBIEN [Concomitant]
     Active Substance: ZOLPIDEM TARTRATE
     Indication: Product used for unknown indication
     Dosage: BEDTIME
  15. DEXAMETHASONE [Concomitant]
     Active Substance: DEXAMETHASONE
     Indication: Product used for unknown indication
  16. BUDESONIDE [Concomitant]
     Active Substance: BUDESONIDE
     Indication: Product used for unknown indication
     Dosage: 2 CAPSULES ONCE IN DAY
     Route: 048
  17. PROAIR HFA [Concomitant]
     Active Substance: ALBUTEROL SULFATE
     Indication: Product used for unknown indication
     Dosage: 90 BASE MCG/ACT
  18. ATROPINE\DIPHENOXYLATE [Concomitant]
     Active Substance: ATROPINE\DIPHENOXYLATE
     Indication: Diarrhoea
     Dosage: 2.5-0.025 MG TAKE 1 TABLET BY MOUTH EVERY SIX HOURS AS NEEDED
     Route: 048
  19. GABAPENTIN [Concomitant]
     Active Substance: GABAPENTIN
     Indication: Product used for unknown indication
     Route: 048
  20. MESALAMINE [Concomitant]
     Active Substance: MESALAMINE
     Indication: Product used for unknown indication
     Dosage: 1.2 GRAM TAKE 2 TABLET BY MOUTH ONCE A DAY
     Route: 048
  21. CLENPIQ [Concomitant]
     Active Substance: ANHYDROUS CITRIC ACID\MAGNESIUM OXIDE\SODIUM PICOSULFATE
     Indication: Product used for unknown indication
     Dosage: 10 MG-3.5 GRAM- 12 GRAM/160 ML TAKE AS DIRECTED BY MOUTH.
     Route: 048
  22. DILAUDID [Concomitant]
     Active Substance: HYDROMORPHONE HYDROCHLORIDE
     Indication: Product used for unknown indication
     Dosage: PUSH INTO IV
     Route: 042
     Dates: start: 20230110, end: 20230110
  23. ZOFRAN [Concomitant]
     Active Substance: ONDANSETRON HYDROCHLORIDE
     Indication: Product used for unknown indication
     Dosage: 2 ML, INJECTION, {V PUSH, O
     Route: 042
     Dates: start: 20230110, end: 20230110
  24. NITROGLYCERIN [Concomitant]
     Active Substance: NITROGLYCERIN
     Indication: Chest pain
     Dosage: TIME INTERVAL: AS NECESSARY
     Route: 048
  25. SKYRIZI [Suspect]
     Active Substance: RISANKIZUMAB-RZAA
     Indication: Crohn^s disease
     Dosage: FORM STRENGTH: 600 MG
     Route: 042
     Dates: start: 20221205

REACTIONS (65)
  - Deep vein thrombosis [Unknown]
  - Injection site necrosis [Recovered/Resolved]
  - Enteritis [Unknown]
  - Colitis [Unknown]
  - Dysaesthesia [Unknown]
  - Anastomotic complication [Unknown]
  - Anastomotic ulcer [Unknown]
  - Uterine leiomyoma [Unknown]
  - Iron binding capacity total increased [Unknown]
  - Serum ferritin increased [Unknown]
  - Nausea [Unknown]
  - Pain [Unknown]
  - Crohn^s disease [Unknown]
  - Hypomagnesaemia [Unknown]
  - Injection site pain [Unknown]
  - Injection site erythema [Recovering/Resolving]
  - Abdominal pain lower [Unknown]
  - Chronic obstructive pulmonary disease [Unknown]
  - Anxiety [Unknown]
  - Iron deficiency [Unknown]
  - Anaemia [Unknown]
  - Gastrooesophageal reflux disease [Unknown]
  - Psoriatic arthropathy [Unknown]
  - Depression [Unknown]
  - Limb injury [Recovered/Resolved]
  - Injection site pain [Recovering/Resolving]
  - Abdominal hernia [Unknown]
  - Weight increased [Unknown]
  - Abdominal distension [Unknown]
  - Insomnia [Unknown]
  - Hypertension [Unknown]
  - Arthralgia [Unknown]
  - Myalgia [Unknown]
  - Discomfort [Unknown]
  - Hyperchloraemia [Unknown]
  - Hypokalaemia [Unknown]
  - Hypoalbuminaemia [Unknown]
  - Alanine aminotransferase decreased [Unknown]
  - Red blood cell sedimentation rate increased [Unknown]
  - Erythema [Unknown]
  - Lipase increased [Unknown]
  - Dehydration [Unknown]
  - Blood urea decreased [Unknown]
  - Blood albumin decreased [Unknown]
  - Blood bilirubin increased [Unknown]
  - Dizziness [Unknown]
  - Pyrexia [Unknown]
  - Chills [Recovered/Resolved]
  - Electrolyte imbalance [Unknown]
  - Asthenia [Unknown]
  - Pneumonia [Unknown]
  - Bronchitis [Unknown]
  - Influenza [Unknown]
  - Urinary tract infection [Unknown]
  - Urosepsis [Unknown]
  - Viral infection [Unknown]
  - Cellulitis [Unknown]
  - Abscess [Unknown]
  - Fatigue [Unknown]
  - Injection site discomfort [Recovering/Resolving]
  - Injection site swelling [Unknown]
  - Intestinal dilatation [Unknown]
  - Intra-abdominal fluid collection [Unknown]
  - Thermal burn [Unknown]
  - Postpolypectomy syndrome [Unknown]

NARRATIVE: CASE EVENT DATE: 20220101
